FAERS Safety Report 6355600-9 (Version None)
Quarter: 2009Q3

REPORT INFORMATION
  Report Type: 
  Country: None (occurrence: None)
  Receive Date: 20090909
  Receipt Date: 20090825
  Transmission Date: 20100115
  Serious: Yes (Hospitalization)
  Sender: FDA-Public Use
  Company Number: B0591185A

PATIENT
  Age: 56 Year
  Sex: Female

DRUGS (1)
  1. AMOXICILLIN AND CLAVULANATE POTASSIUM [Suspect]
     Indication: UPPER RESPIRATORY TRACT INFECTION
     Dosage: 625 MG

REACTIONS (8)
  - ACIDOSIS [None]
  - ACUTE GENERALISED EXANTHEMATOUS PUSTULOSIS [None]
  - BLOOD GLUCOSE INCREASED [None]
  - CONJUNCTIVITIS [None]
  - GENERAL PHYSICAL HEALTH DETERIORATION [None]
  - HEART RATE INCREASED [None]
  - SKIN HYPERPIGMENTATION [None]
  - TOXIC EPIDERMAL NECROLYSIS [None]
